FAERS Safety Report 23825721 (Version 12)
Quarter: 2025Q2

REPORT INFORMATION
  Report Type: Spontaneous
  Country: CA (occurrence: CA)
  Receive Date: 20240507
  Receipt Date: 20250630
  Transmission Date: 20250716
  Serious: Yes (Other)
  Sender: PFIZER
  Company Number: CA-PFIZER INC-202300130654

PATIENT
  Age: 46 Year
  Sex: Female
  Weight: 70 kg

DRUGS (32)
  1. RUXIENCE [Suspect]
     Active Substance: RITUXIMAB-PVVR
     Indication: Rheumatoid arthritis
     Route: 042
     Dates: start: 20230309, end: 20230309
  2. RUXIENCE [Suspect]
     Active Substance: RITUXIMAB-PVVR
     Route: 042
     Dates: start: 20230323, end: 20230323
  3. RUXIENCE [Suspect]
     Active Substance: RITUXIMAB-PVVR
     Route: 042
     Dates: start: 20231018, end: 20231018
  4. RUXIENCE [Suspect]
     Active Substance: RITUXIMAB-PVVR
     Route: 042
     Dates: start: 20231102, end: 20231102
  5. RUXIENCE [Suspect]
     Active Substance: RITUXIMAB-PVVR
     Route: 042
     Dates: start: 20240502, end: 20240502
  6. RUXIENCE [Suspect]
     Active Substance: RITUXIMAB-PVVR
     Route: 042
     Dates: start: 20240517, end: 20240517
  7. RUXIENCE [Suspect]
     Active Substance: RITUXIMAB-PVVR
     Route: 042
     Dates: start: 20241129
  8. RUXIENCE [Suspect]
     Active Substance: RITUXIMAB-PVVR
     Route: 042
     Dates: start: 20241213, end: 20241213
  9. RUXIENCE [Suspect]
     Active Substance: RITUXIMAB-PVVR
     Route: 042
     Dates: start: 20250609
  10. RUXIENCE [Suspect]
     Active Substance: RITUXIMAB-PVVR
     Route: 042
     Dates: start: 20250623
  11. ACETAMINOPHEN [Concomitant]
     Active Substance: ACETAMINOPHEN
     Indication: Premedication
     Dates: start: 20231018, end: 20231018
  12. ACETAMINOPHEN [Concomitant]
     Active Substance: ACETAMINOPHEN
     Dates: start: 20231102, end: 20231102
  13. ACETAMINOPHEN [Concomitant]
     Active Substance: ACETAMINOPHEN
     Dates: start: 20241213, end: 20241213
  14. ACETAMINOPHEN [Concomitant]
     Active Substance: ACETAMINOPHEN
     Dates: start: 20250609, end: 20250609
  15. ACETAMINOPHEN [Concomitant]
     Active Substance: ACETAMINOPHEN
     Dates: start: 20250623, end: 20250623
  16. ALEVE [Concomitant]
     Active Substance: NAPROXEN SODIUM
  17. CANNABIDIOL\HERBALS [Concomitant]
     Active Substance: CANNABIDIOL\HERBALS
  18. CELEBREX [Concomitant]
     Active Substance: CELECOXIB
  19. DILAUDID [Concomitant]
     Active Substance: HYDROMORPHONE HYDROCHLORIDE
     Indication: Pain
     Dosage: UNK, 1X/DAY (QHS + PRN; AS NEEDED)
  20. DIPHENHYDRAMINE [Concomitant]
     Active Substance: DIPHENHYDRAMINE
     Indication: Premedication
     Dates: start: 20231018, end: 20231018
  21. DIPHENHYDRAMINE [Concomitant]
     Active Substance: DIPHENHYDRAMINE
     Dates: start: 20231102, end: 20231102
  22. DIPHENHYDRAMINE [Concomitant]
     Active Substance: DIPHENHYDRAMINE
     Dates: start: 20241213, end: 20241213
  23. DIPHENHYDRAMINE [Concomitant]
     Active Substance: DIPHENHYDRAMINE
     Dates: start: 20250609, end: 20250609
  24. DIPHENHYDRAMINE [Concomitant]
     Active Substance: DIPHENHYDRAMINE
     Dates: start: 20250623, end: 20250623
  25. DOSTINEX [Concomitant]
     Active Substance: CABERGOLINE
     Dosage: 0.5 MG, WEEKLY (1X WEEKLY)
  26. DOSTINEN [Concomitant]
     Dosage: 0.5 MG, WEEKLY (1X)
  27. DULOXETINE [Concomitant]
     Active Substance: DULOXETINE
     Dosage: 60 MG, DAILY
  28. LUMIGAN [Concomitant]
     Active Substance: BIMATOPROST
     Route: 047
  29. METHOTREXATE [Concomitant]
     Active Substance: METHOTREXATE
     Indication: Rheumatoid arthritis
  30. PREDNISONE [Concomitant]
     Active Substance: PREDNISONE
  31. SULFASALAZINE [Concomitant]
     Active Substance: SULFASALAZINE
     Dosage: 30 MG, 1X/DAY(DAILY)
  32. SULFASALAZINE [Concomitant]
     Active Substance: SULFASALAZINE
     Dosage: 1 G, 2X/DAY(OTHER- NOT INDICATED)
     Dates: start: 202312

REACTIONS (18)
  - Skin cancer [Recovered/Resolved]
  - Inflammatory bowel disease [Not Recovered/Not Resolved]
  - Glaucoma [Unknown]
  - Vomiting [Not Recovered/Not Resolved]
  - Dysgeusia [Unknown]
  - Ulcer [Unknown]
  - Dehydration [Unknown]
  - Heart rate decreased [Not Recovered/Not Resolved]
  - Abdominal discomfort [Not Recovered/Not Resolved]
  - Food intolerance [Not Recovered/Not Resolved]
  - Diverticulum [Not Recovered/Not Resolved]
  - Burning sensation [Recovered/Resolved]
  - Nausea [Recovered/Resolved]
  - Condition aggravated [Not Recovered/Not Resolved]
  - Abdominal pain upper [Not Recovered/Not Resolved]
  - Abdominal pain [Unknown]
  - Off label use [Unknown]
  - Product use issue [Unknown]

NARRATIVE: CASE EVENT DATE: 20230323
